FAERS Safety Report 15390202 (Version 2)
Quarter: 2018Q4

REPORT INFORMATION
  Report Type: Spontaneous
  Country: IT (occurrence: IT)
  Receive Date: 20180917
  Receipt Date: 20181003
  Transmission Date: 20190204
  Serious: Yes (Death, Other)
  Sender: FDA-Public Use
  Company Number: IT-TEVA-2018-IT-955389

PATIENT
  Age: 77 Year
  Sex: Female
  Weight: 65 kg

DRUGS (7)
  1. LANSOPRAOLO [Concomitant]
  2. TILDIEM [Concomitant]
     Active Substance: DILTIAZEM HYDROCHLORIDE
  3. METFORMIN [Suspect]
     Active Substance: METFORMIN HYDROCHLORIDE
     Indication: DIABETES MELLITUS
     Dosage: 3000 MILLIGRAM DAILY;
     Route: 048
  4. LUVION 50 MG COMPRESSE [Concomitant]
     Route: 048
  5. SINVASTATINA [Concomitant]
     Active Substance: SIMVASTATIN
  6. BACTRIM [Concomitant]
     Active Substance: SULFAMETHOXAZOLE\TRIMETHOPRIM
  7. AMLODIPINE [Concomitant]
     Active Substance: AMLODIPINE BESYLATE
     Route: 048

REACTIONS (3)
  - Sepsis [Unknown]
  - Lactic acidosis [Fatal]
  - Lung infection [Unknown]

NARRATIVE: CASE EVENT DATE: 20180827
